FAERS Safety Report 5759107-9 (Version None)
Quarter: 2008Q2

REPORT INFORMATION
  Report Type: 
  Country: None (occurrence: None)
  Receive Date: 20080604
  Receipt Date: 20080529
  Transmission Date: 20081010
  Serious: Yes (Death, Life-Threatening, Hospitalization, Disabling)
  Sender: FDA-Public Use
  Company Number: ZA-ABBOTT-08P-143-0450910-00

PATIENT
  Sex: Male
  Weight: 69 kg

DRUGS (26)
  1. RITONAVIR SOFT GELATIN CAPSULES (NOT ADMINISTERED) [Suspect]
     Indication: HIV INFECTION
  2. KALETRA [Suspect]
     Indication: HIV INFECTION
     Route: 048
     Dates: start: 20060421, end: 20060723
  3. TRUVADA [Concomitant]
     Indication: DRUG USE FOR UNKNOWN INDICATION
     Route: 048
     Dates: start: 20060421
  4. STILPAIN [Concomitant]
     Indication: MENINGITIS CRYPTOCOCCAL
     Dates: start: 20060421, end: 20060723
  5. STILPAIN [Concomitant]
     Indication: HEADACHE
  6. GENTAMICIN [Concomitant]
     Indication: MENINGITIS CRYPTOCOCCAL
     Dates: start: 20060426, end: 20060505
  7. FLUCONAZOLE [Concomitant]
     Indication: MENINGITIS CRYPTOCOCCAL
     Dates: start: 20060421, end: 20060427
  8. CEFTRIAXONE [Concomitant]
     Indication: MENINGITIS CRYPTOCOCCAL
     Dates: start: 20060426, end: 20060505
  9. ACETAMINOPHEN [Concomitant]
     Indication: HEADACHE
     Dates: start: 20060505, end: 20060505
  10. TRAMADOL HCL [Concomitant]
     Indication: HEADACHE
     Dates: start: 20060429, end: 20060509
  11. PETHIDINE [Concomitant]
     Indication: HEADACHE
     Dates: start: 20060422, end: 20060503
  12. UNIVERSAL EYE DROPS [Concomitant]
     Indication: EYE PAIN
     Dates: start: 20060422, end: 20060430
  13. CELESTONA BIFAS [Concomitant]
     Indication: COUGH
     Dates: start: 20060614, end: 20060614
  14. CODEINE SUL TAB [Concomitant]
     Indication: COUGH
     Dates: start: 20060426, end: 20060530
  15. PREDNISONE TAB [Concomitant]
     Indication: COUGH
     Dates: start: 20060425, end: 20060723
  16. CHLORPHENIRAMINE MALEATE [Concomitant]
     Indication: COUGH
     Dates: start: 20060525, end: 20060530
  17. BREVA [Concomitant]
     Indication: COUGH
     Dates: start: 20060526, end: 20060723
  18. PULMICORT ULTRA DOSE VIAL [Concomitant]
     Indication: COUGH
     Dates: start: 20060526, end: 20060723
  19. FLEXOCAM [Concomitant]
     Indication: PAIN
     Dates: start: 20060425, end: 20060723
  20. FLEXOCAM [Concomitant]
     Indication: HEADACHE
  21. AFRICA SOLUTION [Concomitant]
     Indication: FATIGUE
     Dates: start: 20060425, end: 20060630
  22. METOCLOPRAMIDE HYDROCHLORIDE [Concomitant]
     Indication: VOMITING
     Dates: start: 20060428, end: 20060722
  23. PROCHLORPERAZINE [Concomitant]
     Indication: VOMITING
     Dates: start: 20060430, end: 20060430
  24. COMBAREN [Concomitant]
     Indication: HEADACHE
     Dates: start: 20060503, end: 20060510
  25. PAX [Concomitant]
     Indication: HEADACHE
     Dates: start: 20060423, end: 20060424
  26. FLUCONAZOLE [Concomitant]
     Dates: start: 20060429, end: 20060723

REACTIONS (1)
  - CEREBROVASCULAR ACCIDENT [None]
